FAERS Safety Report 8571110-2 (Version None)
Quarter: 2012Q3

REPORT INFORMATION
  Report Type: 
  Country: None (occurrence: None)
  Receive Date: 20120730
  Receipt Date: 20120730
  Transmission Date: 20120928
  Serious: Yes (Other)
  Sender: FDA-Public Use
  Company Number: None

PATIENT
  Age: 22 Year
  Sex: Female
  Weight: 81.6475 kg

DRUGS (1)
  1. NORETHINDRONE ACETATE AND ETHINYL ESTRADIOL [Suspect]
     Indication: METRORRHAGIA
     Dosage: ONE TABLET PER 28 DAYS PO
     Route: 048
     Dates: start: 20120701, end: 20120725

REACTIONS (4)
  - VAGINAL HAEMORRHAGE [None]
  - MUSCLE SPASMS [None]
  - DEPRESSION [None]
  - MOOD SWINGS [None]
